FAERS Safety Report 6469214-3 (Version None)
Quarter: 2009Q4

REPORT INFORMATION
  Report Type: 
  Country: None (occurrence: None)
  Receive Date: 20091203
  Receipt Date: 20071015
  Transmission Date: 20100525
  Serious: Yes (Other)
  Sender: FDA-Public Use
  Company Number: IT-ELI_LILLY_AND_COMPANY-IT200703003965

PATIENT
  Sex: Female

DRUGS (4)
  1. DULOXETINE HYDROCHLORIDE [Suspect]
     Indication: DEPRESSION
     Dosage: 60 MG, DAILY (1/D)
     Route: 048
     Dates: start: 20060220, end: 20070420
  2. EUTIROX [Concomitant]
     Indication: HYPOTHYROIDISM
     Dosage: 100 UG, DAILY (1/D)
     Route: 048
     Dates: start: 19940101
  3. TICLOPIDINE HYDROCHLORIDE [Concomitant]
     Dosage: 250 MG, DAILY (1/D)
     Dates: start: 20060926, end: 20070328
  4. LORAZEPAM [Concomitant]
     Indication: ANXIETY DISORDER
     Dosage: 1 MG, DAILY (1/D)

REACTIONS (3)
  - BONE MARROW FAILURE [None]
  - HYPERVITAMINOSIS [None]
  - MYELODYSPLASTIC SYNDROME [None]
